FAERS Safety Report 18820780 (Version 2)
Quarter: 2021Q1

REPORT INFORMATION
  Report Type: Spontaneous
  Country: CA (occurrence: CA)
  Receive Date: 20210202
  Receipt Date: 20210310
  Transmission Date: 20210419
  Serious: Yes (Other)
  Sender: FDA-Public Use
  Company Number: CA-GLAXOSMITHKLINE-CA2021AMR022149

PATIENT
  Sex: Female

DRUGS (3)
  1. ZEJULA [Suspect]
     Active Substance: NIRAPARIB
     Indication: MALIGNANT PERITONEAL NEOPLASM
  2. ZEJULA [Suspect]
     Active Substance: NIRAPARIB
     Indication: OVARIAN EPITHELIAL CANCER RECURRENT
     Dosage: 200 MG, QD
     Route: 048
     Dates: start: 20201208
  3. ZEJULA [Suspect]
     Active Substance: NIRAPARIB
     Indication: FALLOPIAN TUBE CANCER

REACTIONS (2)
  - Neutropenia [Unknown]
  - Brain neoplasm [Unknown]
